FAERS Safety Report 18448798 (Version 1)
Quarter: 2020Q4

REPORT INFORMATION
  Report Type: Spontaneous
  Country: US (occurrence: US)
  Receive Date: 20201101
  Receipt Date: 20201101
  Transmission Date: 20210114
  Serious: No
  Sender: FDA-Public Use
  Company Number: US-SA-2020SA300201

PATIENT

DRUGS (1)
  1. KEVZARA [Suspect]
     Active Substance: SARILUMAB
     Indication: PRODUCT USED FOR UNKNOWN INDICATION
     Dosage: 200 MG, QOW
     Route: 058
     Dates: start: 202010, end: 202010

REACTIONS (4)
  - Mouth swelling [Unknown]
  - Swelling face [Unknown]
  - Dyspnoea [Unknown]
  - Ulcer [Unknown]

NARRATIVE: CASE EVENT DATE: 202010
